FAERS Safety Report 19259768 (Version 1)
Quarter: 2021Q2

REPORT INFORMATION
  Report Type: Spontaneous
  Country: GB (occurrence: GB)
  Receive Date: 20210514
  Receipt Date: 20210514
  Transmission Date: 20210717
  Serious: Yes (Hospitalization)
  Sender: FDA-Public Use
  Company Number: GB-VERTEX PHARMACEUTICALS-2021-007407

PATIENT
  Sex: Female

DRUGS (4)
  1. KAFTRIO [Suspect]
     Active Substance: ELEXACAFTOR\IVACAFTOR\TEZACAFTOR
     Indication: CYSTIC FIBROSIS
     Dosage: 75MG IVA/50MG TEZA/ 100MG ELEXA AT UNK FREQ
     Route: 048
     Dates: start: 20200919, end: 202104
  2. MORPHINE [Suspect]
     Active Substance: MORPHINE
     Indication: NEPHROLITHIASIS
     Route: 065
  3. PARACETAMOL [Suspect]
     Active Substance: ACETAMINOPHEN
     Indication: NEPHROLITHIASIS
     Route: 065
  4. KALYDECO [Suspect]
     Active Substance: IVACAFTOR
     Indication: CYSTIC FIBROSIS
     Dosage: UNK
     Route: 048
     Dates: start: 20200919, end: 202104

REACTIONS (3)
  - Nephrolithiasis [Unknown]
  - Lower respiratory tract infection [Not Recovered/Not Resolved]
  - Liver disorder [Unknown]
